FAERS Safety Report 9167965 (Version 1)
Quarter: 2013Q1

REPORT INFORMATION
  Report Type: Spontaneous
  Country: US (occurrence: None)
  Receive Date: 20130208
  Receipt Date: 20130208
  Transmission Date: 20140127
  Serious: Yes (Death)
  Sender: FDA-Public Use
  Company Number: 2013PROUSA02528

PATIENT
  Age: 59 Year
  Sex: Male
  Weight: 105.2 kg

DRUGS (5)
  1. PROVENGE (SIPULEUCEL-T) SUSPENSION [Suspect]
     Indication: PROSTATE CANCER METASTATIC
     Route: 042
     Dates: start: 20121012, end: 20121012
  2. VYTORIN (EZETIMIBE, SIMVASTATIN) [Concomitant]
  3. METOPROLOL (METOPROLOL TARTRATE) [Concomitant]
  4. NEXIUM (ESOMEPRAZOLE MAGNESIUM) [Concomitant]
  5. LISINOPRIL [Concomitant]

REACTIONS (2)
  - Prostate cancer metastatic [None]
  - Malignant neoplasm progression [None]
